FAERS Safety Report 4492107-8 (Version None)
Quarter: 2004Q4

REPORT INFORMATION
  Report Type: 
  Country: None (occurrence: None)
  Receive Date: 20041101
  Receipt Date: 20041025
  Transmission Date: 20050328
  Serious: Yes (Hospitalization)
  Sender: FDA-Public Use
  Company Number: 2004083956

PATIENT
  Sex: Male

DRUGS (2)
  1. LIPITOR [Suspect]
     Indication: ILL-DEFINED DISORDER
  2. ALL OTHER THERAPEUTIC PRODUCTS 9ALL OTEHR THERAPEUTIC PRODUCTS) [Suspect]

REACTIONS (5)
  - ATRIAL FIBRILLATION [None]
  - DEHYDRATION [None]
  - DYSSTASIA [None]
  - PAIN [None]
  - RHABDOMYOLYSIS [None]
